FAERS Safety Report 23851645 (Version 2)
Quarter: 2024Q2

REPORT INFORMATION
  Report Type: Spontaneous
  Country: US (occurrence: US)
  Receive Date: 20240514
  Receipt Date: 20240531
  Transmission Date: 20240716
  Serious: No
  Sender: FDA-Public Use
  Company Number: US-HALEON-2174545

PATIENT
  Age: 50 Year
  Sex: Male

DRUGS (1)
  1. SENSODYNE COMPLETE PROTECTION [Suspect]
     Active Substance: STANNOUS FLUORIDE
     Indication: Dental disorder prophylaxis
     Dates: start: 20240415, end: 20240510

REACTIONS (6)
  - Gingival bleeding [Not Recovered/Not Resolved]
  - Hypoaesthesia oral [Unknown]
  - Stomatitis [Recovered/Resolved]
  - Ageusia [Recovered/Resolved]
  - Feeling hot [Unknown]
  - Feeling abnormal [Unknown]

NARRATIVE: CASE EVENT DATE: 20240401
